FAERS Safety Report 24567800 (Version 1)
Quarter: 2024Q4

REPORT INFORMATION
  Report Type: Spontaneous
  Country: US (occurrence: US)
  Receive Date: 20241031
  Receipt Date: 20241031
  Transmission Date: 20250114
  Serious: No
  Sender: AMGEN
  Company Number: US-AMGEN-USASP2024214493

PATIENT
  Age: 57 Year
  Sex: Female

DRUGS (2)
  1. TAVNEOS [Suspect]
     Active Substance: AVACOPAN
     Indication: Product used for unknown indication
     Dosage: 30 MILLIGRAM, BID (THREE CAPSULES BY MOUTH, TWICE DAILY)
     Route: 048
     Dates: start: 20241007
  2. RITUXAN [Concomitant]
     Active Substance: RITUXIMAB
     Dosage: UNK
     Route: 065

REACTIONS (3)
  - Pyrexia [Unknown]
  - Gingival erythema [Unknown]
  - Cold sweat [Unknown]

NARRATIVE: CASE EVENT DATE: 20241014
